FAERS Safety Report 6162237-3 (Version None)
Quarter: 2009Q2

REPORT INFORMATION
  Report Type: 
  Country: None (occurrence: None)
  Receive Date: 20090417
  Receipt Date: 20090417
  Transmission Date: 20091009
  Serious: Yes (Other)
  Sender: FDA-Public Use
  Company Number: None

PATIENT
  Sex: Male
  Weight: 83.9154 kg

DRUGS (1)
  1. ASMANEX TWISTHALER [Suspect]
     Indication: ASTHMA
     Dosage: 1 PUFF PER DAY PO
     Route: 048

REACTIONS (5)
  - CHEST PAIN [None]
  - HYPOAESTHESIA [None]
  - OROPHARYNGEAL BLISTERING [None]
  - SLEEP DISORDER [None]
  - TONGUE BLISTERING [None]
